FAERS Safety Report 10204670 (Version 1)
Quarter: 2014Q2

REPORT INFORMATION
  Report Type: Spontaneous
  Country: US (occurrence: None)
  Receive Date: 20140527
  Receipt Date: 20140527
  Transmission Date: 20141212
  Serious: Yes (Hospitalization, Disabling)
  Sender: FDA-Public Use
  Company Number: None

PATIENT
  Age: 48 Year
  Sex: Female
  Weight: 68.04 kg

DRUGS (2)
  1. EFFEXOR [Suspect]
     Indication: ANXIETY DISORDER DUE TO A GENERAL MEDICAL CONDITION
     Route: 048
     Dates: start: 20090331, end: 20121201
  2. EFFEXOR [Suspect]
     Indication: NEOPLASM MALIGNANT
     Route: 048
     Dates: start: 20090331, end: 20121201

REACTIONS (6)
  - Mania [None]
  - Drug dose omission [None]
  - Post procedural complication [None]
  - Aggression [None]
  - Abnormal behaviour [None]
  - Therapy cessation [None]
